FAERS Safety Report 8860446 (Version 1)
Quarter: 2012Q4

REPORT INFORMATION
  Report Type: 
  Country: US (occurrence: US)
  Receive Date: 20121025
  Receipt Date: 20121025
  Transmission Date: 20130627
  Serious: No
  Sender: FDA-Public Use
  Company Number: US-B.I. PHARMACEUTICALS,INC./RIDGEFIELD-2012-BP-25695BP

PATIENT
  Age: 81 Year
  Sex: Male

DRUGS (5)
  1. AGGRENOX [Suspect]
     Indication: CEREBROVASCULAR ACCIDENT PROPHYLAXIS
     Route: 048
     Dates: start: 20120717
  2. VASOTEC [Concomitant]
     Indication: HYPERTENSION
     Dosage: 20 mg
     Route: 048
     Dates: start: 1992
  3. ZOCOR [Concomitant]
     Indication: CARDIAC DISORDER
     Dosage: 10 mg
     Route: 048
     Dates: start: 2005
  4. OMEGA 3 FISH OIL [Concomitant]
     Indication: CARDIAC DISORDER
     Route: 048
     Dates: start: 2010
  5. MULTIVITAMINS [Concomitant]
     Route: 048
     Dates: start: 2002

REACTIONS (2)
  - Headache [Not Recovered/Not Resolved]
  - Sluggishness [Not Recovered/Not Resolved]
